FAERS Safety Report 6618413-6 (Version None)
Quarter: 2010Q1

REPORT INFORMATION
  Report Type: 
  Country: None (occurrence: None)
  Receive Date: 20100308
  Receipt Date: 20100303
  Transmission Date: 20100710
  Serious: Yes (Hospitalization)
  Sender: FDA-Public Use
  Company Number: B0637317A

PATIENT
  Sex: Female

DRUGS (16)
  1. AUGMENTIN '125' [Suspect]
     Indication: INFECTION
     Dosage: 1G THREE TIMES PER DAY
     Route: 042
     Dates: start: 20091230, end: 20100124
  2. DEPAKOTE [Suspect]
     Dosage: 250MG FIVE TIMES PER DAY
     Route: 048
     Dates: end: 20100115
  3. MOPRAL [Suspect]
     Indication: GASTRODUODENAL ULCER
     Dosage: 40MG PER DAY
     Route: 048
     Dates: end: 20100128
  4. CORDARONE [Suspect]
     Indication: ATRIAL FIBRILLATION
     Dosage: 200MG SEE DOSAGE TEXT
     Route: 048
     Dates: start: 20100101, end: 20100126
  5. RIVOTRIL [Concomitant]
     Dosage: 5DROP IN THE MORNING
     Route: 065
  6. PREVISCAN [Concomitant]
     Dosage: .75UNIT PER DAY
     Route: 065
  7. LEVOTHYROX [Concomitant]
     Dosage: 75MG PER DAY
     Route: 065
  8. NASALIDE [Concomitant]
     Dosage: 2UNIT TWICE PER DAY
     Route: 065
  9. DOLIPRANE [Concomitant]
     Dosage: 1G THREE TIMES PER DAY
     Route: 065
  10. OCTAPLEX [Concomitant]
     Route: 065
     Dates: start: 20100101, end: 20100102
  11. BLOOD TRANSFUSION [Concomitant]
     Route: 065
     Dates: start: 20100101, end: 20100101
  12. LOVENOX [Concomitant]
     Dosage: .2MG TWICE PER DAY
     Route: 065
     Dates: start: 20100101, end: 20100113
  13. CALCIPARINE [Concomitant]
     Dosage: .2ML TWICE PER DAY
     Route: 065
     Dates: start: 20100113
  14. CETORNAN [Concomitant]
     Dosage: 2UNIT PER DAY
     Route: 065
  15. SERESTA [Concomitant]
     Dosage: 10MG PER DAY
     Route: 065
  16. FORLAX [Concomitant]
     Dosage: 2UNIT PER DAY
     Route: 065

REACTIONS (11)
  - BLOOD SODIUM INCREASED [None]
  - CLOSTRIDIUM DIFFICILE COLITIS [None]
  - DEHYDRATION [None]
  - LEUKOPENIA [None]
  - NEUTROPENIA [None]
  - OVERDOSE [None]
  - PANCYTOPENIA [None]
  - PAROTITIS [None]
  - RED BLOOD CELL ROULEAUX FORMATION PRESENT [None]
  - RENAL FAILURE [None]
  - THROMBOCYTOPENIA [None]
